FAERS Safety Report 4998208-X (Version None)
Quarter: 2006Q2

REPORT INFORMATION
  Report Type: 
  Country: None (occurrence: None)
  Receive Date: 20060508
  Receipt Date: 20060425
  Transmission Date: 20061013
  Serious: Yes (Other)
  Sender: FDA-Public Use
  Company Number: 2006056668

PATIENT
  Sex: Female
  Weight: 108.8633 kg

DRUGS (6)
  1. NEURONTIN [Suspect]
     Indication: NEUROPATHY
     Dates: end: 20050101
  2. LYRICA [Suspect]
     Indication: NEUROPATHY
     Dosage: 150 MG (50 MG, 3 IN 1 D),
     Dates: start: 20060101
  3. ANTIINFLAMMATORY/ANTIRHEUMATIC NON-STEROIDS (ANTIINFLAMMATORY/ANTIRHEU [Suspect]
     Indication: OSTEOARTHRITIS
     Dates: end: 20050101
  4. AMITRIPTYLINE (AMITRIPTYLINE) [Suspect]
     Indication: ILL-DEFINED DISORDER
  5. FOSAMAX [Concomitant]
  6. LIDOCAINE [Concomitant]

REACTIONS (10)
  - CONFUSIONAL STATE [None]
  - DISORIENTATION [None]
  - GASTROINTESTINAL ULCER HAEMORRHAGE [None]
  - IMPAIRED DRIVING ABILITY [None]
  - INSOMNIA [None]
  - MEMORY IMPAIRMENT [None]
  - MENTAL DISORDER [None]
  - OEDEMA PERIPHERAL [None]
  - VISION BLURRED [None]
  - WEIGHT INCREASED [None]
